FAERS Safety Report 4354047-4 (Version None)
Quarter: 2004Q2

REPORT INFORMATION
  Report Type: 
  Country: None (occurrence: None)
  Receive Date: 20040506
  Receipt Date: 20040430
  Transmission Date: 20050107
  Serious: Yes (Hospitalization)
  Sender: FDA-Public Use
  Company Number: 200413311US

PATIENT
  Sex: 0

DRUGS (2)
  1. ALLEGRA [Suspect]
     Dosage: DOSE: NOT PROVIDED
  2. CORTICOSTEROIDS [Concomitant]
     Dosage: DOSE: NOT PROVIDED

REACTIONS (1)
  - ANGIONEUROTIC OEDEMA [None]
